FAERS Safety Report 19076136 (Version 5)
Quarter: 2021Q4

REPORT INFORMATION
  Report Type: Report from Study
  Country: TH (occurrence: TH)
  Receive Date: 20210330
  Receipt Date: 20211011
  Transmission Date: 20220303
  Serious: Yes (Hospitalization, Other)
  Sender: FDA-Public Use
  Company Number: TH-JNJFOC-20201151540

PATIENT
  Age: 42 Year
  Sex: Male

DRUGS (3)
  1. DARZALEX [Suspect]
     Active Substance: DARATUMUMAB
     Indication: Plasma cell myeloma
     Route: 042
     Dates: start: 20201009, end: 20201124
  2. DARZALEX [Suspect]
     Active Substance: DARATUMUMAB
     Dosage: DRUG STOPPED ON 23-APR-2021
     Route: 042
     Dates: start: 20210222
  3. VELCADE [Suspect]
     Active Substance: BORTEZOMIB
     Indication: Plasma cell myeloma
     Dosage: DRUG STOPPED ON 23-APR-2021
     Route: 042
     Dates: start: 20201009, end: 20201124

REACTIONS (5)
  - Renal disorder [Not Recovered/Not Resolved]
  - Pyrexia [Unknown]
  - Diarrhoea [Unknown]
  - Anaemia [Not Recovered/Not Resolved]
  - Drug ineffective [Unknown]

NARRATIVE: CASE EVENT DATE: 20201124
